FAERS Safety Report 9112443 (Version 1)
Quarter: 2013Q1

REPORT INFORMATION
  Report Type: Spontaneous
  Country: US (occurrence: US)
  Receive Date: 20130211
  Receipt Date: 20130211
  Transmission Date: 20140127
  Serious: Yes (Other)
  Sender: FDA-Public Use
  Company Number: US-JNJFOC-20130107403

PATIENT
  Sex: Female
  Weight: 49.9 kg

DRUGS (6)
  1. DURAGESIC [Suspect]
     Indication: FIBROMYALGIA
     Route: 062
  2. DURAGESIC [Suspect]
     Indication: FIBROMYALGIA
     Route: 062
  3. DURAGESIC [Suspect]
     Indication: FIBROMYALGIA
     Route: 062
     Dates: start: 2000
  4. MYLAN FENTANYL TRANSDERMAL SYSTEM [Suspect]
     Indication: FIBROMYALGIA
     Route: 062
  5. XANAX [Concomitant]
     Indication: SLEEP DISORDER
     Route: 048
  6. PERCOCET [Concomitant]
     Indication: PAIN
     Route: 065
     Dates: start: 2000

REACTIONS (5)
  - Withdrawal syndrome [Unknown]
  - Abasia [Unknown]
  - Tobacco user [Unknown]
  - Therapy cessation [Unknown]
  - Lethargy [Unknown]
